FAERS Safety Report 13689281 (Version 4)
Quarter: 2017Q4

REPORT INFORMATION
  Report Type: Spontaneous
  Country: US (occurrence: US)
  Receive Date: 20170626
  Receipt Date: 20171031
  Transmission Date: 20180320
  Serious: Yes (Hospitalization, Other)
  Sender: FDA-Public Use
  Company Number: US-PFIZER INC-2017268673

PATIENT
  Age: 82 Year
  Sex: Female
  Weight: 77 kg

DRUGS (4)
  1. XELJANZ XR [Suspect]
     Active Substance: TOFACITINIB CITRATE
     Dosage: 11 MG, DAILY
     Route: 048
     Dates: end: 201708
  2. XELJANZ XR [Suspect]
     Active Substance: TOFACITINIB CITRATE
     Indication: RHEUMATOID ARTHRITIS
     Dosage: 11 MG, 1X/DAY
     Route: 048
     Dates: start: 201611, end: 20170605
  3. METHOTREXATE. [Concomitant]
     Active Substance: METHOTREXATE
     Indication: RHEUMATOID ARTHRITIS
     Dosage: 8 DF, WEEKLY (8 PILLS A WEEK, UNSURE OF DOSE)
     Dates: end: 201707
  4. METHOTREXATE. [Concomitant]
     Active Substance: METHOTREXATE
     Dosage: 20 MG, UNK (9 WEEK)
     Dates: end: 201708

REACTIONS (7)
  - Productive cough [Recovering/Resolving]
  - Respiratory tract infection [Recovered/Resolved]
  - Rheumatoid lung [Unknown]
  - Dyspnoea [Recovering/Resolving]
  - Infection susceptibility increased [Unknown]
  - Nasopharyngitis [Unknown]
  - Hypersensitivity [Unknown]

NARRATIVE: CASE EVENT DATE: 2016
